FAERS Safety Report 20451015 (Version 1)
Quarter: 2022Q1

REPORT INFORMATION
  Report Type: Spontaneous
  Country: US (occurrence: None)
  Receive Date: 20220209
  Receipt Date: 20220209
  Transmission Date: 20220423
  Serious: No
  Sender: FDA-Public Use
  Company Number: None

PATIENT
  Age: 60 Year
  Sex: Female
  Weight: 55 kg

DRUGS (1)
  1. TRUXIMA [Suspect]
     Active Substance: RITUXIMAB-ABBS
     Indication: Lymphoma
     Route: 041

REACTIONS (4)
  - Infusion related reaction [None]
  - Chills [None]
  - Back pain [None]
  - Hot flush [None]

NARRATIVE: CASE EVENT DATE: 20220120
